FAERS Safety Report 4384155-3 (Version None)
Quarter: 2004Q2

REPORT INFORMATION
  Report Type: 
  Country: None (occurrence: None)
  Receive Date: 20040621
  Receipt Date: 20040604
  Transmission Date: 20050107
  Serious: Yes (Hospitalization)
  Sender: FDA-Public Use
  Company Number: 2004219219FR

PATIENT
  Age: 69 Year
  Sex: Female

DRUGS (6)
  1. CARDIZEM [Suspect]
     Dosage: 200 MG, TID, ORAL
     Route: 048
  2. POLIFLU (ACETYLSALICYLATE LYSINE) POWDER [Suspect]
     Dosage: 1 DF, QD,
  3. ALDACTONE [Suspect]
     Dosage: 50 MG, QD, ORAL
     Route: 048
  4. MEDIATOR (BENFLUOREX HYDROCHLORIDE) [Suspect]
     Dosage: 150 MG, TID, ORAL
     Route: 048
  5. FUROSEMIDE [Suspect]
     Dosage: 40 MG, TID, ORAL
     Route: 048
  6. AMARYL [Suspect]
     Dosage: 1 DF, QD, ORAL
     Route: 048

REACTIONS (1)
  - PRURITUS [None]
